FAERS Safety Report 9759989 (Version 4)
Quarter: 2014Q1

REPORT INFORMATION
  Report Type: Report from Study
  Country: JP (occurrence: JP)
  Receive Date: 20131216
  Receipt Date: 20140108
  Transmission Date: 20141002
  Serious: Yes (Death, Disabling)
  Sender: FDA-Public Use
  Company Number: JP-JNJFOC-20130916378

PATIENT
  Age: 61 Year
  Sex: Male
  Weight: 55 kg

DRUGS (24)
  1. ONEDURO [Suspect]
     Indication: CANCER PAIN
     Route: 062
     Dates: start: 20120207
  2. ONEDURO [Suspect]
     Indication: CANCER PAIN
     Route: 062
     Dates: start: 20120130, end: 20120207
  3. FENTANYL [Concomitant]
     Indication: CANCER PAIN
     Route: 065
     Dates: start: 20120207, end: 20120207
  4. FENTANYL [Concomitant]
     Indication: CANCER PAIN
     Route: 065
     Dates: start: 20120208, end: 20120209
  5. FENTANYL [Concomitant]
     Indication: CANCER PAIN
     Route: 065
     Dates: start: 20120204, end: 20120204
  6. FENTANYL [Concomitant]
     Indication: CANCER PAIN
     Route: 065
     Dates: start: 20120202, end: 20120202
  7. FENTANYL [Concomitant]
     Indication: CANCER PAIN
     Route: 065
     Dates: start: 20120205, end: 20120205
  8. FENTANYL [Concomitant]
     Indication: CANCER PAIN
     Route: 065
     Dates: start: 20120205, end: 20120205
  9. SERENACE [Concomitant]
     Indication: DELIRIUM
     Route: 065
     Dates: start: 20120204, end: 20120215
  10. SERENACE [Concomitant]
     Indication: DEPRESSED LEVEL OF CONSCIOUSNESS
     Route: 065
     Dates: start: 20120204, end: 20120215
  11. SERENACE [Concomitant]
     Indication: CACHEXIA
     Route: 065
     Dates: start: 20120204, end: 20120215
  12. LOXOPROFEN [Concomitant]
     Indication: CANCER PAIN
     Route: 048
     Dates: end: 20120209
  13. REBAMIPIDE [Concomitant]
     Indication: PROPHYLAXIS
     Route: 048
     Dates: end: 20120209
  14. JU-KAMA [Concomitant]
     Indication: PROPHYLAXIS
     Route: 048
     Dates: end: 20120209
  15. ALOSENN [Concomitant]
     Indication: PROPHYLAXIS
     Route: 048
     Dates: end: 20120209
  16. TAPIZOL [Concomitant]
     Indication: PROPHYLAXIS
     Route: 048
     Dates: start: 20120204, end: 20120209
  17. RINDERON [Concomitant]
     Indication: CACHEXIA
     Route: 048
     Dates: start: 20120204, end: 20120209
  18. OXINORM (OXYCODONE HYDROCHLORIDE) [Concomitant]
     Indication: CANCER PAIN
     Route: 048
     Dates: start: 20120202, end: 20120202
  19. OXINORM (OXYCODONE HYDROCHLORIDE) [Concomitant]
     Indication: CANCER PAIN
     Route: 048
     Dates: start: 20120203, end: 20120204
  20. OXINORM (OXYCODONE HYDROCHLORIDE) [Concomitant]
     Indication: CANCER PAIN
     Route: 048
     Dates: start: 20120208, end: 20120209
  21. OXINORM (OXYCODONE HYDROCHLORIDE) [Concomitant]
     Indication: CANCER PAIN
     Route: 048
     Dates: start: 20120130, end: 20120201
  22. OXINORM (OXYCODONE HYDROCHLORIDE) [Concomitant]
     Indication: CANCER PAIN
     Route: 048
     Dates: start: 20120206, end: 20120207
  23. MIDAZOLAM [Concomitant]
     Indication: DELIRIUM
     Route: 065
     Dates: start: 20120209, end: 20120215
  24. MIDAZOLAM [Concomitant]
     Indication: CACHEXIA
     Route: 065
     Dates: start: 20120209, end: 20120215

REACTIONS (3)
  - Bladder cancer [Fatal]
  - Cachexia [Fatal]
  - Delirium [Not Recovered/Not Resolved]
